FAERS Safety Report 14427606 (Version 1)
Quarter: 2018Q1

REPORT INFORMATION
  Report Type: Spontaneous
  Country: US (occurrence: US)
  Receive Date: 20180123
  Receipt Date: 20180123
  Transmission Date: 20180509
  Serious: Yes (Other)
  Sender: FDA-Public Use
  Company Number: US-ALLERGAN-1803021US

PATIENT
  Sex: Female

DRUGS (1)
  1. CORDRAN [Suspect]
     Active Substance: FLURANDRENOLIDE
     Indication: PSORIASIS
     Dosage: UNK
     Route: 061

REACTIONS (2)
  - Chronic obstructive pulmonary disease [Unknown]
  - Autoimmune disorder [Unknown]
